FAERS Safety Report 6291590-5 (Version None)
Quarter: 2009Q3

REPORT INFORMATION
  Report Type: 
  Country: None (occurrence: None)
  Receive Date: 20090730
  Receipt Date: 20090730
  Transmission Date: 20100115
  Serious: Yes (Life-Threatening)
  Sender: FDA-Public Use
  Company Number: None

PATIENT
  Age: 14 Year
  Sex: Male
  Weight: 129.2752 kg

DRUGS (4)
  1. SEROQUEL [Suspect]
     Indication: AGGRESSION
     Dosage: 50 MG 3X DAY PO
     Route: 048
     Dates: start: 20090101, end: 20090722
  2. SEROQUEL [Suspect]
     Indication: AUTISM
     Dosage: 50 MG 3X DAY PO
     Route: 048
     Dates: start: 20090101, end: 20090722
  3. SEROQUEL [Suspect]
     Indication: BIPOLAR DISORDER
     Dosage: 50 MG 3X DAY PO
     Route: 048
     Dates: start: 20090101, end: 20090722
  4. SEROQUEL [Suspect]
     Indication: MOOD ALTERED
     Dosage: 50 MG 3X DAY PO
     Route: 048
     Dates: start: 20090101, end: 20090722

REACTIONS (2)
  - AGGRESSION [None]
  - SUICIDAL IDEATION [None]
